FAERS Safety Report 14957335 (Version 1)
Quarter: 2018Q2

REPORT INFORMATION
  Report Type: Report from Study
  Country: US (occurrence: US)
  Receive Date: 20180531
  Receipt Date: 20180531
  Transmission Date: 20180711
  Serious: Yes (Other)
  Sender: FDA-Public Use
  Company Number: US-JAZZ-2018-US-008212

PATIENT
  Sex: Male

DRUGS (19)
  1. DEXAMFETAMINE [Concomitant]
     Active Substance: DEXTROAMPHETAMINE
  2. VENTOLIN HFA [Concomitant]
     Active Substance: ALBUTEROL SULFATE
  3. ARMODAFINIL. [Concomitant]
     Active Substance: ARMODAFINIL
  4. XYREM [Suspect]
     Active Substance: SODIUM OXYBATE
     Dosage: 4.5 G, BID
     Route: 048
     Dates: start: 201709
  5. VITAMIN D3 [Concomitant]
     Active Substance: CHOLECALCIFEROL
  6. XYREM [Suspect]
     Active Substance: SODIUM OXYBATE
     Indication: NARCOLEPSY
     Dosage: 2.25 G, BID
     Route: 048
     Dates: start: 201708, end: 201708
  7. HYDROXYZINE [Concomitant]
     Active Substance: HYDROXYZINE HYDROCHLORIDE
  8. OMEGA 3 FISH OILS [Concomitant]
     Active Substance: OMEGA-3 FATTY ACIDS
  9. MELATONIN [Concomitant]
     Active Substance: MELATONIN
  10. LEVITRA [Concomitant]
     Active Substance: VARDENAFIL HYDROCHLORIDE TRIHYDRATE
  11. AMITRIPTYLINE HCL [Concomitant]
     Active Substance: AMITRIPTYLINE
  12. GABAPENTIN. [Concomitant]
     Active Substance: GABAPENTIN
  13. METFORMIN HCL [Concomitant]
     Active Substance: METFORMIN HYDROCHLORIDE
  14. XYREM [Suspect]
     Active Substance: SODIUM OXYBATE
     Indication: CATAPLEXY
     Dosage: DOSE ADJUSTMENTS
     Route: 048
     Dates: start: 201708, end: 201709
  15. ALLOPURINOL. [Concomitant]
     Active Substance: ALLOPURINOL
  16. LISINOPRIL + HIDROCLOROTIAZIDA [Concomitant]
     Active Substance: HYDROCHLOROTHIAZIDE\LISINOPRIL
  17. MELOXICAM. [Concomitant]
     Active Substance: MELOXICAM
  18. TIZANIDINE HCL [Concomitant]
     Active Substance: TIZANIDINE HYDROCHLORIDE
  19. QUETIAPINE FUMARATE. [Concomitant]
     Active Substance: QUETIAPINE FUMARATE

REACTIONS (5)
  - Back injury [Not Recovered/Not Resolved]
  - Spinal fracture [Unknown]
  - Intervertebral disc protrusion [Not Recovered/Not Resolved]
  - Pain [Not Recovered/Not Resolved]
  - Hypoaesthesia [Unknown]
